FAERS Safety Report 4487753-1 (Version None)
Quarter: 2004Q4

REPORT INFORMATION
  Report Type: 
  Country: None (occurrence: None)
  Receive Date: 20041027
  Receipt Date: 20041027
  Transmission Date: 20050328
  Serious: Yes (Hospitalization)
  Sender: FDA-Public Use
  Company Number: None

PATIENT
  Age: 63 Year
  Sex: Male
  Weight: 87.9978 kg

DRUGS (5)
  1. ASPIRIN [Suspect]
     Dosage: 81 MG QD
     Route: 048
  2. FOSINOPRIL SODIUM [Concomitant]
  3. HYDROCHLOROTHIAZIDE [Concomitant]
  4. METOPROLOL SUCCINATE [Concomitant]
  5. SIMVASTATIN [Concomitant]

REACTIONS (2)
  - DYSPEPSIA [None]
  - HAEMATOCHEZIA [None]
